FAERS Safety Report 7050140-6 (Version None)
Quarter: 2010Q4

REPORT INFORMATION
  Report Type: 
  Country: None (occurrence: None)
  Receive Date: 20101018
  Receipt Date: 20101008
  Transmission Date: 20110411
  Serious: Yes (Hospitalization)
  Sender: FDA-Public Use
  Company Number: US-MERCK-1010USA01022

PATIENT
  Age: 87 Year
  Sex: Female

DRUGS (6)
  1. ZETIA [Suspect]
     Indication: BLOOD CHOLESTEROL INCREASED
     Route: 048
     Dates: start: 20100902, end: 20100924
  2. JANUVIA [Concomitant]
     Route: 048
  3. NIFEDIPINE [Suspect]
     Route: 065
  4. LISINOPRIL [Concomitant]
     Route: 065
  5. ASPIRIN [Concomitant]
     Route: 065
  6. SYNTHROID [Concomitant]
     Route: 065

REACTIONS (5)
  - ADVERSE EVENT [None]
  - ASTHENIA [None]
  - FATIGUE [None]
  - MYALGIA [None]
  - OEDEMA [None]
